FAERS Safety Report 11804042 (Version 1)
Quarter: 2015Q4

REPORT INFORMATION
  Report Type: Report from Study
  Country: HU (occurrence: HU)
  Receive Date: 20151204
  Receipt Date: 20151204
  Transmission Date: 20160305
  Serious: Yes (Hospitalization)
  Sender: FDA-Public Use
  Company Number: HU-DEP_13160_2015

PATIENT
  Age: 58 Year
  Sex: Male
  Weight: 57 kg

DRUGS (5)
  1. BKM120 VS PLACEBO(CODE NOT BROKEN) [Suspect]
     Active Substance: BUPARLISIB HYDROCHLORIDE
     Indication: SQUAMOUS CELL CARCINOMA OF HEAD AND NECK
     Dosage: UNK
     Dates: start: 20140528, end: 20141003
  2. CATAFLAM [Suspect]
     Active Substance: DICLOFENAC POTASSIUM
     Indication: PAIN
     Dosage: MAXIMUM 3X1 TIMES A DAY
     Route: 048
     Dates: start: 20141008, end: 20141015
  3. COMPARATOR PACLITAXEL (PACLITAXEL) [Suspect]
     Active Substance: PACLITAXEL
     Indication: SQUAMOUS CELL CARCINOMA OF HEAD AND NECK
     Dosage: UNK
     Dates: start: 20140528, end: 20140924
  4. BKM120 VS PLACEBO(CODE NOT BROKEN) [Suspect]
     Active Substance: BUPARLISIB HYDROCHLORIDE
     Dosage: UNK
     Dates: end: 20141015
  5. FENTANYL (FENTANYL) [Concomitant]
     Active Substance: FENTANYL
     Dosage: DF
     Dates: start: 20110515

REACTIONS (2)
  - Cancer pain [Recovered/Resolved]
  - Abdominal pain [Recovered/Resolved]

NARRATIVE: CASE EVENT DATE: 20141016
